FAERS Safety Report 13192645 (Version 1)
Quarter: 2017Q1

REPORT INFORMATION
  Report Type: Spontaneous
  Country: US (occurrence: US)
  Receive Date: 20170207
  Receipt Date: 20170207
  Transmission Date: 20170428
  Serious: Yes (Hospitalization)
  Sender: FDA-Public Use
  Company Number: None

PATIENT
  Age: 71 Year
  Sex: Male
  Weight: 80.92 kg

DRUGS (3)
  1. VOTRIENT [Suspect]
     Active Substance: PAZOPANIB HYDROCHLORIDE
     Indication: RENAL CANCER
     Dosage: 4 PILLS DAILY MOUTH
     Route: 048
     Dates: start: 20161204, end: 20170106
  2. VOTRIENT [Suspect]
     Active Substance: PAZOPANIB HYDROCHLORIDE
     Indication: LUNG NEOPLASM MALIGNANT
     Dosage: 4 PILLS DAILY MOUTH
     Route: 048
     Dates: start: 20161204, end: 20170106
  3. VOTRIENT [Suspect]
     Active Substance: PAZOPANIB HYDROCHLORIDE
     Indication: BONE CANCER
     Dosage: 4 PILLS DAILY MOUTH
     Route: 048
     Dates: start: 20161204, end: 20170106

REACTIONS (6)
  - Flatulence [None]
  - Abdominal discomfort [None]
  - Fatigue [None]
  - Vomiting [None]
  - Blood pressure systolic increased [None]
  - Weight abnormal [None]

NARRATIVE: CASE EVENT DATE: 20170104
